FAERS Safety Report 20145889 (Version 28)
Quarter: 2023Q1

REPORT INFORMATION
  Report Type: Report from Study
  Country: CA (occurrence: CA)
  Receive Date: 20211203
  Receipt Date: 20230310
  Transmission Date: 20230417
  Serious: Yes (Disabling, Other)
  Sender: FDA-Public Use
  Company Number: CA-TAKEDA-CA202021673

PATIENT
  Age: 7 Year
  Sex: Male
  Weight: 25.85 kg

DRUGS (26)
  1. IDURSULFASE [Suspect]
     Active Substance: IDURSULFASE
     Indication: Mucopolysaccharidosis II
     Dosage: 12 MILLIGRAM, 1/WEEK
     Route: 065
     Dates: start: 20191204
  2. IDURSULFASE [Suspect]
     Active Substance: IDURSULFASE
     Dosage: 12 MILLIGRAM, 1/WEEK
     Route: 065
     Dates: start: 20191204
  3. IDURSULFASE [Suspect]
     Active Substance: IDURSULFASE
     Dosage: 12 MILLIGRAM, 1/WEEK
     Route: 065
     Dates: start: 20191204
  4. IDURSULFASE [Suspect]
     Active Substance: IDURSULFASE
     Dosage: 12 MILLIGRAM, 1/WEEK
     Route: 065
     Dates: start: 20191204
  5. IDURSULFASE [Suspect]
     Active Substance: IDURSULFASE
     Dosage: 12 MILLIGRAM, 1/WEEK
     Route: 065
     Dates: start: 20191204
  6. IDURSULFASE [Suspect]
     Active Substance: IDURSULFASE
     Dosage: 2 DOSAGE FORM, 1/WEEK
     Route: 065
     Dates: start: 20191204
  7. IDURSULFASE [Suspect]
     Active Substance: IDURSULFASE
     Dosage: 0.5 MILLIGRAM, 1/WEEK
     Route: 065
     Dates: start: 20191204
  8. IDURSULFASE [Suspect]
     Active Substance: IDURSULFASE
     Dosage: 13.2 MILLIGRAM, 1/WEEK
     Route: 065
     Dates: start: 20191204
  9. IDURSULFASE [Suspect]
     Active Substance: IDURSULFASE
     Dosage: 13.2 MILLIGRAM, 1/WEEK
     Route: 065
     Dates: start: 20191204
  10. IDURSULFASE [Suspect]
     Active Substance: IDURSULFASE
     Dosage: 13.2 MILLIGRAM, 1/WEEK
     Route: 065
     Dates: start: 20191204
  11. IDURSULFASE [Suspect]
     Active Substance: IDURSULFASE
     Dosage: 13.2 MILLIGRAM, 1/WEEK
     Route: 042
     Dates: start: 20191204
  12. IDURSULFASE [Suspect]
     Active Substance: IDURSULFASE
     Dosage: 2 DOSAGE FORM, 1/WEEK
     Route: 042
     Dates: start: 20191204
  13. IDURSULFASE [Suspect]
     Active Substance: IDURSULFASE
     Dosage: 13.2 MILLIGRAM, 1/WEEK
     Route: 042
     Dates: start: 20191204
  14. IDURSULFASE [Suspect]
     Active Substance: IDURSULFASE
     Dosage: 2 DOSAGE FORM, 1/WEEK
     Route: 042
     Dates: start: 20191204
  15. IDURSULFASE [Suspect]
     Active Substance: IDURSULFASE
     Dosage: 2 DOSAGE FORM, 1/WEEK
     Route: 050
     Dates: start: 20191204
  16. IDURSULFASE [Suspect]
     Active Substance: IDURSULFASE
     Dosage: 2 DOSAGE FORM, 1/WEEK
     Route: 050
     Dates: start: 20191204
  17. IDURSULFASE [Suspect]
     Active Substance: IDURSULFASE
     Dosage: 13.2 MILLIGRAM, 1/WEEK
     Route: 065
     Dates: start: 20191204
  18. IDURSULFASE [Suspect]
     Active Substance: IDURSULFASE
     Dosage: 2 DOSAGE FORM, 1/WEEK
     Route: 050
     Dates: start: 20191204
  19. IDURSULFASE [Suspect]
     Active Substance: IDURSULFASE
     Dosage: 2 DOSAGE FORM, 1/WEEK
     Route: 050
     Dates: start: 20191204
  20. IDURSULFASE [Suspect]
     Active Substance: IDURSULFASE
     Dosage: 2 DOSAGE FORM, 1/WEEK
     Route: 050
     Dates: start: 20191204
  21. IDURSULFASE [Suspect]
     Active Substance: IDURSULFASE
     Dosage: 12 MILLIGRAM, 1/WEEK
     Route: 050
     Dates: start: 20191204
  22. IDURSULFASE [Suspect]
     Active Substance: IDURSULFASE
     Dosage: 12 MILLIGRAM, 1/WEEK
     Route: 050
     Dates: start: 20191204
  23. BENADRYL [Suspect]
     Active Substance: DIPHENHYDRAMINE HYDROCHLORIDE
     Indication: Product used for unknown indication
     Dosage: 30 MILLIGRAM
     Route: 065
  24. ATIVAN [Suspect]
     Active Substance: LORAZEPAM
     Indication: Product used for unknown indication
     Dosage: UNK
     Route: 065
  25. ACETAMINOPHEN [Suspect]
     Active Substance: ACETAMINOPHEN
     Indication: Product used for unknown indication
     Dosage: UNK
     Route: 065
  26. LORAZEPAM [Concomitant]
     Active Substance: LORAZEPAM
     Indication: Premedication
     Dosage: 1 MILLIGRAM
     Route: 065

REACTIONS (32)
  - Intellectual disability [Unknown]
  - Choking [Unknown]
  - Influenza [Not Recovered/Not Resolved]
  - Poor quality sleep [Unknown]
  - Agitation [Recovered/Resolved]
  - Respiratory rate decreased [Unknown]
  - Heart rate decreased [Recovered/Resolved]
  - Weight increased [Unknown]
  - Blood pressure increased [Recovered/Resolved]
  - Somnolence [Not Recovered/Not Resolved]
  - Blood pressure systolic increased [Unknown]
  - Toothache [Recovered/Resolved]
  - Body temperature decreased [Unknown]
  - COVID-19 [Recovered/Resolved]
  - Patient uncooperative [Recovered/Resolved]
  - Balance disorder [Not Recovered/Not Resolved]
  - Restlessness [Recovered/Resolved]
  - Tooth injury [Recovered/Resolved]
  - Respiratory tract infection viral [Recovered/Resolved]
  - Upper respiratory tract infection [Not Recovered/Not Resolved]
  - Productive cough [Unknown]
  - Rhinorrhoea [Unknown]
  - Salivary hypersecretion [Unknown]
  - Weight decreased [Unknown]
  - Infusion related reaction [Unknown]
  - Fatigue [Unknown]
  - Tremor [Unknown]
  - Vomiting [Unknown]
  - Poor venous access [Recovered/Resolved]
  - Inappropriate schedule of product administration [Recovered/Resolved]
  - Wrong technique in product usage process [Unknown]
  - Product use complaint [Unknown]

NARRATIVE: CASE EVENT DATE: 20200101
